FAERS Safety Report 12846438 (Version 1)
Quarter: 2016Q4

REPORT INFORMATION
  Report Type: Spontaneous
  Country: US (occurrence: US)
  Receive Date: 20161014
  Receipt Date: 20161014
  Transmission Date: 20170207
  Serious: No
  Sender: FDA-Public Use
  Company Number: US-AMGEN-USASP2016141009

PATIENT
  Sex: Female

DRUGS (1)
  1. ENBREL [Suspect]
     Active Substance: ETANERCEPT
     Indication: PRODUCT USED FOR UNKNOWN INDICATION
     Dosage: 50 MG, UNK
     Route: 065

REACTIONS (12)
  - Drug ineffective [Unknown]
  - Rash [Unknown]
  - Back pain [Unknown]
  - Pain in extremity [Unknown]
  - Pruritus [Unknown]
  - Feeling abnormal [Unknown]
  - Erythema [Unknown]
  - Inflammation [Unknown]
  - Mood swings [Unknown]
  - Sleep disorder [Unknown]
  - Musculoskeletal stiffness [Unknown]
  - Myalgia [Unknown]
